FAERS Safety Report 14175326 (Version 1)
Quarter: 2017Q4

REPORT INFORMATION
  Report Type: Spontaneous
  Country: US (occurrence: US)
  Receive Date: 20171109
  Receipt Date: 20171109
  Transmission Date: 20180321
  Serious: No
  Sender: FDA-Public Use
  Company Number: US-SA-2017SA167874

PATIENT
  Age: 58 Year
  Sex: Female

DRUGS (1)
  1. LEVOCETIRIZINE [Suspect]
     Active Substance: LEVOCETIRIZINE
     Indication: HYPERSENSITIVITY
     Route: 048

REACTIONS (1)
  - Drug ineffective [Unknown]
